FAERS Safety Report 13122901 (Version 1)
Quarter: 2017Q1

REPORT INFORMATION
  Report Type: Report from Study
  Country: US (occurrence: US)
  Receive Date: 20170117
  Receipt Date: 20170117
  Transmission Date: 20170428
  Serious: Yes (Death, Other)
  Sender: FDA-Public Use
  Company Number: US-PFIZER INC-2017017295

PATIENT

DRUGS (5)
  1. GLUTAMINE [Concomitant]
     Active Substance: GLUTAMINE
     Indication: NUTRITIONAL SUPPLEMENTATION
     Dosage: 10 MG, 3X/DAY
  2. CARBOPLATIN. [Suspect]
     Active Substance: CARBOPLATIN
     Indication: NON-SMALL CELL LUNG CANCER
     Dosage: 2 MG/M2, WEEKLY
     Route: 065
  3. PACLITAXEL. [Suspect]
     Active Substance: PACLITAXEL
     Dosage: 100 MG/M2/WEEK 3 WEEKS OUT OF 4
     Route: 065
  4. PACLITAXEL. [Suspect]
     Active Substance: PACLITAXEL
     Indication: NON-SMALL CELL LUNG CANCER
     Dosage: 50 MG/M2, FREQ: WEEKLY
     Route: 065
  5. CARBOPLATIN. [Suspect]
     Active Substance: CARBOPLATIN
     Dosage: 6 AUC, (TWO CYCLES) EVERY 4 WEEKS
     Route: 065

REACTIONS (1)
  - Tracheo-oesophageal fistula [Fatal]
